FAERS Safety Report 9205900 (Version 1)
Quarter: 2013Q2

REPORT INFORMATION
  Report Type: Spontaneous
  Country: CH (occurrence: CH)
  Receive Date: 20130403
  Receipt Date: 20130403
  Transmission Date: 20140414
  Serious: Yes (Other)
  Sender: FDA-Public Use
  Company Number: CH-JNJFOC-20130308913

PATIENT
  Age: 90 Year
  Sex: Female

DRUGS (11)
  1. XARELTO [Suspect]
     Indication: CEREBROVASCULAR ACCIDENT PROPHYLAXIS
     Route: 048
     Dates: start: 20121101, end: 20130304
  2. XARELTO [Suspect]
     Indication: ATRIAL FIBRILLATION
     Route: 048
     Dates: start: 20121101, end: 20130304
  3. PARACETAMOL [Concomitant]
     Route: 065
  4. BISOPROLOL [Concomitant]
     Route: 065
  5. DEANXIT [Concomitant]
     Route: 065
  6. PANTOPRAZOLE [Concomitant]
     Route: 065
  7. RASILEZ [Concomitant]
     Route: 065
  8. DAFALGAN [Concomitant]
     Route: 065
  9. FOLVITE [Concomitant]
     Route: 065
  10. IMPORTAL [Concomitant]
     Route: 065
  11. HERBAL PREPARATION [Concomitant]
     Route: 065

REACTIONS (1)
  - Cerebral haemorrhage [Not Recovered/Not Resolved]
